FAERS Safety Report 19514770 (Version 1)
Quarter: 2021Q3

REPORT INFORMATION
  Report Type: Spontaneous
  Country: FR (occurrence: FR)
  Receive Date: 20210709
  Receipt Date: 20210709
  Transmission Date: 20211014
  Serious: Yes (Hospitalization, Other)
  Sender: FDA-Public Use
  Company Number: FR-SA-2021SA225382

PATIENT
  Age: 63 Year
  Sex: Female

DRUGS (2)
  1. LEVOFLOXACIN. [Suspect]
     Active Substance: LEVOFLOXACIN
     Indication: ARTHRITIS INFECTIVE
     Dosage: 300 MG
     Route: 048
     Dates: start: 20210408, end: 20210506
  2. RIFADINE [Suspect]
     Active Substance: RIFAMPIN
     Indication: ARTHRITIS INFECTIVE
     Dosage: 250 MG
     Route: 048
     Dates: start: 20210408, end: 20210506

REACTIONS (4)
  - Crystalluria [Recovered/Resolved with Sequelae]
  - Renal tubular disorder [Recovered/Resolved with Sequelae]
  - Urine oxalate increased [Recovered/Resolved with Sequelae]
  - Acute kidney injury [Recovered/Resolved with Sequelae]

NARRATIVE: CASE EVENT DATE: 20210503
